FAERS Safety Report 8187572-9 (Version None)
Quarter: 2012Q1

REPORT INFORMATION
  Report Type: 
  Country: None (occurrence: None)
  Receive Date: 20120306
  Receipt Date: 20120220
  Transmission Date: 20120608
  Serious: Yes (Other)
  Sender: FDA-Public Use
  Company Number: PHHY2012ES017068

PATIENT
  Age: 40 Year
  Sex: Female

DRUGS (3)
  1. METHOTREXATE [Suspect]
     Indication: SYMPATHETIC OPHTHALMIA
     Dosage: 15 MG, PER WEEK
  2. CYCLOSPORINE [Suspect]
     Indication: SYMPATHETIC OPHTHALMIA
     Dosage: 150 MG, DAILY
  3. PREDNISONE TAB [Suspect]
     Indication: SYMPATHETIC OPHTHALMIA
     Dosage: 30-90 MG, DAILY

REACTIONS (3)
  - RETINAL DETACHMENT [None]
  - INFLAMMATION [None]
  - SYMPATHETIC OPHTHALMIA [None]
